FAERS Safety Report 5644574-1 (Version None)
Quarter: 2008Q1

REPORT INFORMATION
  Report Type: 
  Country: None (occurrence: None)
  Receive Date: 20080229
  Receipt Date: 20070315
  Transmission Date: 20080703
  Serious: No
  Sender: FDA-Public Use
  Company Number: A0643363A

PATIENT
  Sex: Female

DRUGS (2)
  1. VALTREX [Suspect]
     Indication: HERPES ZOSTER
     Dosage: 1G THREE TIMES PER DAY
     Route: 048
     Dates: start: 20070201
  2. NO CONCURRENT MEDICATION [Concomitant]

REACTIONS (1)
  - MIGRAINE [None]
